FAERS Safety Report 8906394 (Version 1)
Quarter: 2012Q4

REPORT INFORMATION
  Report Type: Spontaneous
  Country: DK (occurrence: None)
  Receive Date: 20121107
  Receipt Date: 20121107
  Transmission Date: 20130627
  Serious: Yes (Hospitalization)
  Sender: FDA-Public Use
  Company Number: 2012P1061294

PATIENT
  Age: 58 Year
  Sex: Male
  Weight: 96 kg

DRUGS (1)
  1. AMIODARONE [Suspect]
     Indication: ARTRIAL FIBRILLATION
     Dates: start: 201202, end: 20120401

REACTIONS (2)
  - Hepatotoxicity [None]
  - Nephropathy toxic [None]
